FAERS Safety Report 18349171 (Version 3)
Quarter: 2020Q4

REPORT INFORMATION
  Report Type: Spontaneous
  Country: US (occurrence: US)
  Receive Date: 20201006
  Receipt Date: 20201110
  Transmission Date: 20210114
  Serious: Yes (Other)
  Sender: FDA-Public Use
  Company Number: US-PFIZER INC-2020379025

PATIENT
  Age: 80 Year
  Sex: Female
  Weight: 54.43 kg

DRUGS (2)
  1. MACROBID [Concomitant]
     Active Substance: NITROFURANTOIN\NITROFURANTOIN MONOHYDRATE
     Indication: PROPHYLAXIS URINARY TRACT INFECTION
     Dosage: UNK
  2. PREMARIN [Suspect]
     Active Substance: ESTROGENS, CONJUGATED
     Indication: ATROPHIC VULVOVAGINITIS
     Dosage: 0.5 MG, 2X/WEEK
     Route: 067
     Dates: start: 201905, end: 201905

REACTIONS (13)
  - Condition aggravated [Unknown]
  - Product communication issue [Unknown]
  - Hyperventilation [Unknown]
  - Nervousness [Unknown]
  - Mental status changes [Unknown]
  - Blood pressure increased [Recovered/Resolved]
  - Cognitive disorder [Unknown]
  - Dysstasia [Not Recovered/Not Resolved]
  - Movement disorder [Unknown]
  - Contraindicated product administered [Unknown]
  - Tremor [Unknown]
  - Epistaxis [Unknown]
  - Gait disturbance [Not Recovered/Not Resolved]

NARRATIVE: CASE EVENT DATE: 201905
